FAERS Safety Report 8542228-5 (Version None)
Quarter: 2012Q3

REPORT INFORMATION
  Report Type: 
  Country: None (occurrence: None)
  Receive Date: 20120726
  Receipt Date: 20111021
  Transmission Date: 20120928
  Serious: No
  Sender: FDA-Public Use
  Company Number: US-ASTRAZENECA-2011SE60583

PATIENT
  Age: 53 Year
  Sex: Female
  Weight: 86.2 kg

DRUGS (6)
  1. ADERAL [Concomitant]
  2. SEROQUEL [Suspect]
     Route: 048
  3. SEROQUEL [Suspect]
     Route: 048
  4. SEROQUEL [Suspect]
     Indication: BIPOLAR DISORDER
     Route: 048
  5. NEXIUM [Concomitant]
  6. PROZAC [Concomitant]

REACTIONS (3)
  - NIGHTMARE [None]
  - THERAPEUTIC RESPONSE UNEXPECTED WITH DRUG SUBSTITUTION [None]
  - INCORRECT DRUG DOSAGE FORM ADMINISTERED [None]
